FAERS Safety Report 5486560-0 (Version None)
Quarter: 2007Q4

REPORT INFORMATION
  Report Type: 
  Country: None (occurrence: None)
  Receive Date: 20071012
  Receipt Date: 20071001
  Transmission Date: 20080405
  Serious: Yes (Other)
  Sender: FDA-Public Use
  Company Number: 2007BI020969

PATIENT
  Age: 54 Year
  Sex: Female

DRUGS (1)
  1. NATALIZUMAB [Suspect]
     Indication: MULTIPLE SCLEROSIS
     Dosage: 300 MG; QM ;IV
     Route: 017
     Dates: start: 20061023, end: 20070806

REACTIONS (9)
  - ANAPHYLACTIC SHOCK [None]
  - CHILLS [None]
  - DIPLOPIA [None]
  - DRUG SPECIFIC ANTIBODY PRESENT [None]
  - EYE DISORDER [None]
  - HEADACHE [None]
  - PAIN [None]
  - PRURITUS [None]
  - TREMOR [None]
